FAERS Safety Report 26193629 (Version 1)
Quarter: 2025Q4

REPORT INFORMATION
  Report Type: Spontaneous
  Country: US (occurrence: US)
  Receive Date: 20251224
  Receipt Date: 20251224
  Transmission Date: 20260117
  Serious: Yes (Life-Threatening, Hospitalization, Other)
  Sender: AUROBINDO
  Company Number: US-MLMSERVICE-20251204-PI738579-00050-1

PATIENT
  Age: 42 Year
  Sex: Female

DRUGS (2)
  1. AMLODIPINE [Suspect]
     Active Substance: AMLODIPINE BESYLATE
     Indication: Product used for unknown indication
     Dosage: 8 DOSAGE FORM, TOTAL
     Route: 061
  2. ADVIL [4]
     Active Substance: IBUPROFEN
     Indication: Product used for unknown indication
     Dosage: 8 DOSAGE FORM, TOTAL
     Route: 061

REACTIONS (4)
  - Multiple organ dysfunction syndrome [Unknown]
  - Thrombosis [Unknown]
  - Accidental overdose [Unknown]
  - Wrong product administered [Unknown]
